FAERS Safety Report 18640022 (Version 1)
Quarter: 2020Q4

REPORT INFORMATION
  Report Type: Spontaneous
  Country: US (occurrence: US)
  Receive Date: 20201220
  Receipt Date: 20201220
  Transmission Date: 20210114
  Serious: No
  Sender: FDA-Public Use
  Company Number: US-PACIRA-202000339

PATIENT

DRUGS (3)
  1. EXPAREL [Suspect]
     Active Substance: BUPIVACAINE
     Indication: PRODUCT USED FOR UNKNOWN INDICATION
     Dosage: 20 CC, ADMIXED WITH, MARCAINE 0.5% W/EPINEPHRINE 10CC AND NORMAL SALINE 80CC
     Route: 065
  2. MARCAINE WITH EPINEPHRINE [Concomitant]
     Active Substance: BUPIVACAINE HYDROCHLORIDE\EPINEPHRINE BITARTRATE
     Indication: PRODUCT USED FOR UNKNOWN INDICATION
     Dosage: W/ EPINEPHRINE 10CC ADMIXED WITH EXPAREL 20CC AND??NORMAL SALINE 80CC
     Route: 065
  3. NORMAL SALINE [Concomitant]
     Active Substance: SODIUM CHLORIDE
     Indication: PRODUCT USED FOR UNKNOWN INDICATION
     Dosage: 80 CC ADMIXED WITH MARCAINE 0.5% W/ EPINEPHRINE 10CC, EXPAREL 20CC??
     Route: 065

REACTIONS (1)
  - Labelled drug-drug interaction medication error [Unknown]
